FAERS Safety Report 19275864 (Version 1)
Quarter: 2021Q2

REPORT INFORMATION
  Report Type: Spontaneous
  Country: GB (occurrence: GB)
  Receive Date: 20210519
  Receipt Date: 20210519
  Transmission Date: 20210717
  Serious: Yes (Life-Threatening, Hospitalization, Other)
  Sender: FDA-Public Use
  Company Number: GB-JNJFOC-20210531158

PATIENT
  Age: 64 Year
  Sex: Female
  Weight: 71 kg

DRUGS (6)
  1. FOLIC ACID. [Concomitant]
     Active Substance: FOLIC ACID
     Indication: ILL-DEFINED DISORDER
     Dosage: UNK
  2. GABAPENTIN. [Concomitant]
     Active Substance: GABAPENTIN
     Indication: ILL-DEFINED DISORDER
     Dosage: UNK
  3. XARELTO [Suspect]
     Active Substance: RIVAROXABAN
     Indication: PULMONARY EMBOLISM
     Dosage: 20 MG, OM
     Route: 048
     Dates: start: 2018, end: 20210510
  4. NIZATIDINE. [Concomitant]
     Active Substance: NIZATIDINE
     Indication: ILL-DEFINED DISORDER
     Dosage: UNK
  5. MIRTAZAPINE. [Concomitant]
     Active Substance: MIRTAZAPINE
     Indication: ILL-DEFINED DISORDER
     Dosage: UNK
  6. MORPHINE [Concomitant]
     Active Substance: MORPHINE
     Indication: ILL-DEFINED DISORDER
     Dosage: UNK

REACTIONS (1)
  - Pulmonary embolism [Recovering/Resolving]

NARRATIVE: CASE EVENT DATE: 20210506
